FAERS Safety Report 9016343 (Version 2)
Quarter: 2013Q1

REPORT INFORMATION
  Report Type: Spontaneous
  Country: US (occurrence: US)
  Receive Date: 20130116
  Receipt Date: 20130212
  Transmission Date: 20140127
  Serious: Yes (Hospitalization)
  Sender: FDA-Public Use
  Company Number: US-GILEAD-2013-0067972

PATIENT
  Sex: Female

DRUGS (4)
  1. LETAIRIS [Suspect]
     Indication: RESPIRATORY FAILURE
     Dosage: 10 MG, UNK
     Dates: start: 20091202
  2. LETAIRIS [Suspect]
     Indication: PNEUMONIA
  3. LETAIRIS [Suspect]
     Indication: CARDIAC FAILURE
  4. LETAIRIS [Suspect]
     Indication: PULMONARY HYPERTENSION

REACTIONS (1)
  - Pneumonia [Unknown]
